FAERS Safety Report 10008929 (Version 2)
Quarter: 2014Q1

REPORT INFORMATION
  Report Type: Spontaneous
  Country: US (occurrence: US)
  Receive Date: 20140313
  Receipt Date: 20140313
  Transmission Date: 20141002
  Serious: No
  Sender: FDA-Public Use
  Company Number: US-INCYTE CORPORATION-2012IN000294

PATIENT
  Age: 52 Year
  Sex: Male

DRUGS (6)
  1. PEPCID AC [Concomitant]
     Dosage: UNK, QD HS
  2. JAKAFI [Suspect]
     Indication: MYELOFIBROSIS
     Dosage: 20 MG, BID
     Route: 048
     Dates: start: 20120109, end: 20120227
  3. JAKAFI [Suspect]
     Dosage: 10 MG, BID
     Route: 048
     Dates: start: 20120228, end: 20120409
  4. JAKAFI [Suspect]
     Dosage: 5 MG, BID
     Route: 048
     Dates: start: 20120410, end: 20120501
  5. VALTREX [Concomitant]
     Dosage: 1 G, QD
     Route: 048
  6. OMEPRAZOLE [Concomitant]
     Dosage: 40 MG, QD
     Route: 048

REACTIONS (5)
  - Abdominal pain [Unknown]
  - Pruritus [Unknown]
  - Platelet count decreased [Not Recovered/Not Resolved]
  - Haemoglobin decreased [Not Recovered/Not Resolved]
  - Red blood cell count decreased [Not Recovered/Not Resolved]
